FAERS Safety Report 5768172-4 (Version None)
Quarter: 2008Q2

REPORT INFORMATION
  Report Type: 
  Country: None (occurrence: None)
  Receive Date: 20080612
  Receipt Date: 20080603
  Transmission Date: 20081010
  Serious: Yes (Other)
  Sender: FDA-Public Use
  Company Number: TW-AMGEN-US285520

PATIENT
  Age: 46 Year
  Sex: Female

DRUGS (2)
  1. ARANESP [Suspect]
     Indication: DIALYSIS
     Route: 065
     Dates: start: 20061001, end: 20070201
  2. EPOETIN BETA [Suspect]
     Indication: DIALYSIS
     Route: 065
     Dates: start: 20070301, end: 20080401

REACTIONS (1)
  - ANAEMIA [None]
